FAERS Safety Report 9300029 (Version 1)
Quarter: 2013Q1

REPORT INFORMATION
  Report Type: Spontaneous
  Country: US (occurrence: None)
  Receive Date: 20121231
  Receipt Date: 20121231
  Transmission Date: 20140127
  Serious: Yes (Hospitalization, Other)
  Sender: FDA-Public Use
  Company Number: RB-46286-2012

PATIENT
  Age: 44 Year
  Sex: Female

DRUGS (4)
  1. SUBOXONE [Suspect]
     Indication: DRUG DEPENDENCE
  2. SUBOXONE [Suspect]
     Indication: PAIN
  3. SUBUTEX [Concomitant]
  4. COLACE [Suspect]

REACTIONS (4)
  - Wrong technique in drug usage process [None]
  - Off label use [None]
  - Urinary tract infection [None]
  - Narcolepsy [None]
